FAERS Safety Report 14244894 (Version 2)
Quarter: 2018Q1

REPORT INFORMATION
  Report Type: Spontaneous
  Country: DE (occurrence: DE)
  Receive Date: 20171201
  Receipt Date: 20180119
  Transmission Date: 20180508
  Serious: Yes (Other)
  Sender: FDA-Public Use
  Company Number: DE-009507513-1711DEU012802

PATIENT
  Sex: Male

DRUGS (8)
  1. INEGY 10 MG/20 MG TABLETTEN [Suspect]
     Active Substance: EZETIMIBE\SIMVASTATIN
     Indication: HYPERLIPIDAEMIA
     Route: 048
  2. METOPROLOL. [Concomitant]
     Active Substance: METOPROLOL
     Indication: HYPERLIPIDAEMIA
     Dosage: 47.5 MG, UNK
  3. INEGY 10 MG/20 MG TABLETTEN [Suspect]
     Active Substance: EZETIMIBE\SIMVASTATIN
     Indication: CORONARY ARTERY DISEASE
  4. ASPIRIN. [Concomitant]
     Active Substance: ASPIRIN
     Dosage: 100 MG, UNK
  5. INEGY 10 MG/40 MG TABLETTEN [Suspect]
     Active Substance: EZETIMIBE\SIMVASTATIN
     Indication: CORONARY ARTERY DISEASE
  6. METOPROLOL. [Concomitant]
     Active Substance: METOPROLOL
     Indication: CORONARY ARTERY DISEASE
  7. INEGY 10 MG/40 MG TABLETTEN [Suspect]
     Active Substance: EZETIMIBE\SIMVASTATIN
     Indication: HYPERLIPIDAEMIA
     Route: 048
  8. RAMIPRIL. [Concomitant]
     Active Substance: RAMIPRIL
     Dosage: 5 MG, UNK

REACTIONS (2)
  - Acute myocardial infarction [Unknown]
  - Alanine aminotransferase increased [Recovered/Resolved]
